FAERS Safety Report 13890385 (Version 6)
Quarter: 2020Q2

REPORT INFORMATION
  Report Type: Spontaneous
  Country: US (occurrence: US)
  Receive Date: 20170822
  Receipt Date: 20200521
  Transmission Date: 20200713
  Serious: Yes (Hospitalization, Disabling, Other)
  Sender: FDA-Public Use
  Company Number: US-SA-2017SA152291

PATIENT
  Age: 50 Year
  Sex: Male

DRUGS (1)
  1. AUBAGIO [Suspect]
     Active Substance: TERIFLUNOMIDE
     Indication: MULTIPLE SCLEROSIS
     Dosage: 14 MG,QD
     Route: 048
     Dates: start: 20170317

REACTIONS (18)
  - Arthralgia [Unknown]
  - Nausea [Unknown]
  - Polypectomy [Recovered/Resolved]
  - Drooling [Recovered/Resolved]
  - Vomiting [Unknown]
  - Prostatomegaly [Unknown]
  - Mobility decreased [Unknown]
  - Condition aggravated [Unknown]
  - Quality of life decreased [Unknown]
  - Visual impairment [Unknown]
  - Urinary tract infection [Unknown]
  - Extra dose administered [Unknown]
  - Abdominal discomfort [Not Recovered/Not Resolved]
  - Abdominal pain upper [Not Recovered/Not Resolved]
  - Renal failure [Recovered/Resolved]
  - Arthritis [Unknown]
  - Renal disorder [Unknown]
  - Product dose omission [Unknown]

NARRATIVE: CASE EVENT DATE: 2017
